FAERS Safety Report 13552409 (Version 1)
Quarter: 2017Q2

REPORT INFORMATION
  Report Type: Spontaneous
  Country: AU (occurrence: AU)
  Receive Date: 20170517
  Receipt Date: 20170517
  Transmission Date: 20170830
  Serious: Yes (Death, Other)
  Sender: FDA-Public Use
  Company Number: AU-CIPLA LTD.-2017AU08782

PATIENT

DRUGS (3)
  1. LAMOTRIGINE. [Suspect]
     Active Substance: LAMOTRIGINE
     Dosage: 5 G, UNK
     Route: 048
  2. QUETIAPINE. [Suspect]
     Active Substance: QUETIAPINE
     Dosage: 3 G, UNK, MODIFIED RELEASE
     Route: 048
  3. ZOPICLONE [Suspect]
     Active Substance: ZOPICLONE
     Dosage: 75 MG, UNK
     Route: 048

REACTIONS (4)
  - Distributive shock [Unknown]
  - Intentional overdose [Fatal]
  - Cardiac arrest [Fatal]
  - Toxicity to various agents [Fatal]
